FAERS Safety Report 9097675 (Version 3)
Quarter: 2013Q2

REPORT INFORMATION
  Report Type: Spontaneous
  Country: US (occurrence: US)
  Receive Date: 20130212
  Receipt Date: 20130422
  Transmission Date: 20140414
  Serious: No
  Sender: FDA-Public Use
  Company Number: US-009507513-1302USA001711

PATIENT
  Sex: Male

DRUGS (2)
  1. PEGINTRON [Suspect]
     Indication: HEPATITIS C
     Dosage: UNK
     Dates: start: 20130126, end: 20130405
  2. REBETOL [Suspect]
     Indication: HEPATITIS C
     Dosage: UNK
     Route: 048
     Dates: start: 20130126, end: 20130405

REACTIONS (9)
  - Flushing [Unknown]
  - Hyperhidrosis [Unknown]
  - Dysgeusia [Unknown]
  - Red blood cell abnormality [Unknown]
  - Platelet count decreased [Unknown]
  - Headache [Unknown]
  - Chills [Unknown]
  - Headache [Unknown]
  - Nausea [Unknown]
